FAERS Safety Report 5684620-2 (Version None)
Quarter: 2008Q1

REPORT INFORMATION
  Report Type: 
  Country: None (occurrence: None)
  Receive Date: 20080328
  Receipt Date: 20070412
  Transmission Date: 20080703
  Serious: Yes (Other)
  Sender: FDA-Public Use
  Company Number: US-BRISTOL-MYERS SQUIBB COMPANY-13746417

PATIENT
  Age: 43 Year
  Sex: Female

DRUGS (6)
  1. ERBITUX [Suspect]
     Indication: COLON CANCER
  2. AVASTIN [Suspect]
  3. CAMPTOSAR [Suspect]
  4. ZOFRAN [Concomitant]
     Route: 042
  5. DECADRON [Concomitant]
     Route: 042
  6. BENADRYL [Concomitant]
     Route: 042

REACTIONS (1)
  - DISEASE PROGRESSION [None]
